FAERS Safety Report 12956576 (Version 1)
Quarter: 2016Q4

REPORT INFORMATION
  Report Type: Spontaneous
  Country: US (occurrence: US)
  Receive Date: 20161118
  Receipt Date: 20161118
  Transmission Date: 20170207
  Serious: Yes (Other)
  Sender: FDA-Public Use
  Company Number: US-BAYER-2016-216336

PATIENT
  Age: 50 Year
  Sex: Male

DRUGS (1)
  1. KOGENATE FS [Suspect]
     Active Substance: ANTIHEMOPHILIC FACTOR, HUMAN RECOMBINANT
     Indication: FACTOR VIII DEFICIENCY
     Dosage: 3600 IU, BIW AND PRN BLEEDS DAILY X 2
     Route: 042
     Dates: start: 20070705

REACTIONS (2)
  - Haemarthrosis [None]
  - Neck pain [None]
